FAERS Safety Report 4908482-3 (Version None)
Quarter: 2006Q1

REPORT INFORMATION
  Report Type: 
  Country: None (occurrence: None)
  Receive Date: 20060210
  Receipt Date: 20050728
  Transmission Date: 20060701
  Serious: No
  Sender: FDA-Public Use
  Company Number: US-GLAXOSMITHKLINE-A0568109A

PATIENT
  Age: 34 Year
  Sex: Female

DRUGS (3)
  1. PAXIL CR [Suspect]
     Indication: DRUG USE FOR UNKNOWN INDICATION
     Dosage: 25MG PER DAY
     Route: 048
     Dates: start: 20031120, end: 20050601
  2. COUMADIN [Concomitant]
  3. XANAX [Concomitant]

REACTIONS (1)
  - PROTHROMBIN TIME PROLONGED [None]
